FAERS Safety Report 16828030 (Version 1)
Quarter: 2019Q3

REPORT INFORMATION
  Report Type: Spontaneous
  Country: US (occurrence: US)
  Receive Date: 20190729
  Receipt Date: 20190729
  Transmission Date: 20191005
  Serious: No
  Sender: FDA-Public Use
  Company Number: None

PATIENT
  Age: 56 Year
  Sex: Male

DRUGS (1)
  1. TRETINOIN CAP 10MG [Suspect]
     Active Substance: TRETINOIN
     Dates: start: 20190715

REACTIONS (1)
  - Product prescribing issue [None]

NARRATIVE: CASE EVENT DATE: 20190729
